FAERS Safety Report 4946997-2 (Version None)
Quarter: 2006Q1

REPORT INFORMATION
  Report Type: 
  Country: None (occurrence: None)
  Receive Date: 20060317
  Receipt Date: 20060206
  Transmission Date: 20060701
  Serious: Yes (Hospitalization)
  Sender: FDA-Public Use
  Company Number: JP-ROCHE-435737

PATIENT
  Age: 9 Year
  Sex: Male
  Weight: 36 kg

DRUGS (4)
  1. TAMIFLU [Suspect]
     Route: 048
     Dates: start: 20060206, end: 20060206
  2. ACETAMINOPHEN [Concomitant]
     Route: 048
     Dates: start: 20060206
  3. CISDYNE [Concomitant]
     Route: 048
     Dates: start: 20060207, end: 20060213
  4. TIPEPIDINE HIBENZATE [Concomitant]
     Route: 048
     Dates: start: 20060207, end: 20060213

REACTIONS (3)
  - BLEEDING TIME [None]
  - COAGULATION FACTOR DECREASED [None]
  - DELIRIUM [None]
